FAERS Safety Report 20895506 (Version 1)
Quarter: 2022Q2

REPORT INFORMATION
  Report Type: Spontaneous
  Country: CN (occurrence: None)
  Receive Date: 20220531
  Receipt Date: 20220531
  Transmission Date: 20220721
  Serious: Yes (Hospitalization)
  Sender: FDA-Public Use
  Company Number: CN-ROCHE-3105443

PATIENT
  Age: 62 Year
  Sex: Male
  Weight: 85 kg

DRUGS (6)
  1. AVASTIN [Suspect]
     Active Substance: BEVACIZUMAB
     Indication: Tumour ulceration
     Route: 041
     Dates: start: 20210829
  2. CAPECITABINE [Suspect]
     Active Substance: CAPECITABINE
     Indication: Tumour ulceration
     Route: 048
     Dates: start: 20210829
  3. OXALIPLATIN [Suspect]
     Active Substance: OXALIPLATIN
     Indication: Tumour ulceration
     Route: 041
     Dates: start: 20210829
  4. PHOSPHOLIPID [Concomitant]
     Active Substance: PHOSPHOLIPID
     Route: 048
     Dates: start: 20210917
  5. OMEPRAZOLE SODIUM [Concomitant]
     Active Substance: OMEPRAZOLE SODIUM
     Route: 041
     Dates: start: 20210917
  6. PALONOSETRON HYDROCHLORIDE [Concomitant]
     Active Substance: PALONOSETRON HYDROCHLORIDE
     Route: 041
     Dates: start: 20210917

REACTIONS (1)
  - Myelosuppression [Recovering/Resolving]

NARRATIVE: CASE EVENT DATE: 20210918
